FAERS Safety Report 20147758 (Version 8)
Quarter: 2022Q1

REPORT INFORMATION
  Report Type: Report from Study
  Country: ES (occurrence: ES)
  Receive Date: 20211203
  Receipt Date: 20220119
  Transmission Date: 20220423
  Serious: Yes (Other)
  Sender: FDA-Public Use
  Company Number: ES-ABBVIE-21K-144-4183394-00

PATIENT
  Sex: Male

DRUGS (2)
  1. CARBIDOPA\LEVODOPA [Suspect]
     Active Substance: CARBIDOPA\LEVODOPA
     Indication: Parkinson^s disease
     Route: 050
     Dates: start: 20160630
  2. CARBIDOPA\LEVODOPA [Suspect]
     Active Substance: CARBIDOPA\LEVODOPA

REACTIONS (10)
  - Intestinal ulcer [Recovered/Resolved]
  - Incorrect route of product administration [Unknown]
  - Asthenia [Recovered/Resolved]
  - Fall [Recovered/Resolved]
  - Stoma site pain [Recovered/Resolved]
  - Therapeutic product effect incomplete [Unknown]
  - Stoma site discharge [Recovered/Resolved]
  - Stoma site discharge [Recovered/Resolved]
  - Abdominal pain [Recovered/Resolved]
  - Stoma site discharge [Recovered/Resolved]

NARRATIVE: CASE EVENT DATE: 20200101
